FAERS Safety Report 5590996-7 (Version None)
Quarter: 2008Q1

REPORT INFORMATION
  Report Type: 
  Country: None (occurrence: None)
  Receive Date: 20080110
  Receipt Date: 20071225
  Transmission Date: 20080703
  Serious: Yes (Hospitalization)
  Sender: FDA-Public Use
  Company Number: B0500998A

PATIENT
  Age: 53 Year
  Sex: Female

DRUGS (3)
  1. FLOLAN [Suspect]
     Indication: PULMONARY HYPERTENSION
     Dosage: SEE DOSAGE TEXT/INTRAVENOUS
     Route: 042
     Dates: start: 20030301
  2. BERAPROST SODIUM [Concomitant]
  3. PREDNISOLONE [Concomitant]

REACTIONS (8)
  - ABASIA [None]
  - ALOPECIA [None]
  - ANOREXIA [None]
  - BLOOD PRESSURE DECREASED [None]
  - CARDIAC FAILURE [None]
  - DIARRHOEA [None]
  - DRUG INTOLERANCE [None]
  - GENERAL PHYSICAL HEALTH DETERIORATION [None]
